FAERS Safety Report 16305374 (Version 1)
Quarter: 2019Q2

REPORT INFORMATION
  Report Type: Spontaneous
  Country: US (occurrence: US)
  Receive Date: 20190513
  Receipt Date: 20190513
  Transmission Date: 20190711
  Serious: Yes (Hospitalization)
  Sender: FDA-Public Use
  Company Number: US-APOTEX-2019AP013759

PATIENT
  Age: 18 Year
  Sex: Female

DRUGS (1)
  1. CETIRIZINE [Suspect]
     Active Substance: CETIRIZINE HYDROCHLORIDE
     Indication: ABDOMINAL PAIN
     Dosage: UNK DF, UNK (10-16 TABLETS)
     Route: 065

REACTIONS (2)
  - Methaemoglobinaemia [Recovering/Resolving]
  - Intentional overdose [Recovering/Resolving]
